FAERS Safety Report 8166371-8 (Version None)
Quarter: 2012Q1

REPORT INFORMATION
  Report Type: 
  Country: None (occurrence: None)
  Receive Date: 20120227
  Receipt Date: 20110621
  Transmission Date: 20120608
  Serious: Yes (Other)
  Sender: FDA-Public Use
  Company Number: US-MYLANLABS-2011S1013100

PATIENT
  Sex: Male

DRUGS (8)
  1. CLARAVIS [Suspect]
     Indication: ACNE
     Dates: start: 20060101, end: 20070101
  2. AMNESTEEM [Suspect]
     Indication: ACNE
     Route: 048
     Dates: start: 20060101, end: 20070101
  3. CLARAVIS [Suspect]
     Dates: start: 20090101
  4. SOTRET [Suspect]
     Indication: ACNE
     Dates: start: 20060101, end: 20070101
  5. AMNESTEEM [Suspect]
     Route: 048
     Dates: start: 20090101
  6. SOTRET [Suspect]
     Dates: start: 20090101
  7. ACCUTANE [Suspect]
     Indication: ACNE
     Route: 048
     Dates: start: 20060101, end: 20070101
  8. ACCUTANE [Suspect]
     Route: 048
     Dates: start: 20090101

REACTIONS (1)
  - INFLAMMATORY BOWEL DISEASE [None]
